FAERS Safety Report 5746335-1 (Version None)
Quarter: 2008Q2

REPORT INFORMATION
  Report Type: 
  Country: None (occurrence: None)
  Receive Date: 20080522
  Receipt Date: 20080521
  Transmission Date: 20081010
  Serious: Yes (Death, Hospitalization, Other)
  Sender: FDA-Public Use
  Company Number: PHHO2008DE05724

PATIENT
  Age: 65 Year
  Sex: Female

DRUGS (14)
  1. RESTEX [Suspect]
     Indication: RESTLESS LEGS SYNDROME
  2. BETAHISTINE [Suspect]
     Indication: DIZZINESS
  3. DIGITALIS TAB [Concomitant]
  4. MALTON E [Concomitant]
     Indication: PROPHYLAXIS
  5. LEVOTHYROXINE SODIUM [Concomitant]
     Indication: HYPOTHYROIDISM
  6. MUSARIL [Concomitant]
     Indication: PAIN
  7. BUSCOPAN [Concomitant]
     Indication: PAIN
  8. PANTOPRAZOLE SODIUM [Concomitant]
     Indication: PAIN
  9. BELOC-ZOK [Concomitant]
  10. BUPIVACAINE [Concomitant]
  11. LYRICA [Concomitant]
  12. TASIGNA [Suspect]
     Indication: CHRONIC MYELOID LEUKAEMIA
     Dosage: 200 MG, BID
     Route: 048
     Dates: start: 20061206, end: 20070905
  13. TASIGNA [Suspect]
     Dosage: NO TREATMENT
     Dates: start: 20070906, end: 20070915
  14. TASIGNA [Suspect]
     Dosage: 400 MG, QD
     Route: 048
     Dates: start: 20070916, end: 20071111

REACTIONS (13)
  - ANGINA PECTORIS [None]
  - ASTHENIA [None]
  - ATRIAL FIBRILLATION [None]
  - BLAST CRISIS IN MYELOGENOUS LEUKAEMIA [None]
  - BRADYCARDIA [None]
  - CHEST DISCOMFORT [None]
  - DIARRHOEA [None]
  - DIZZINESS [None]
  - ELECTROCARDIOGRAM ST SEGMENT DEPRESSION [None]
  - FATIGUE [None]
  - MULTI-ORGAN FAILURE [None]
  - TACHYARRHYTHMIA [None]
  - VENTRICULAR TACHYCARDIA [None]
